FAERS Safety Report 24613739 (Version 2)
Quarter: 2025Q3

REPORT INFORMATION
  Report Type: Spontaneous
  Country: None (occurrence: US)
  Receive Date: 20241113
  Receipt Date: 20250819
  Transmission Date: 20251021
  Serious: No
  Sender: Jubilant Radiopharma
  Company Number: US-JUBILANT RADIOPHARMA-2024US000224

PATIENT

DRUGS (1)
  1. DRAXIMAGE MDP-25 [Suspect]
     Active Substance: TECHNETIUM TC-99M MEDRONATE
     Indication: Product used for unknown indication
     Dates: start: 20241011

REACTIONS (1)
  - Drug effect less than expected [Unknown]
